APPROVED DRUG PRODUCT: ADAPALENE
Active Ingredient: ADAPALENE
Strength: 0.3%
Dosage Form/Route: GEL;TOPICAL
Application: A208322 | Product #001 | TE Code: AB
Applicant: SUN PHARMA CANADA INC
Approved: Jun 23, 2016 | RLD: No | RS: No | Type: RX